FAERS Safety Report 12622404 (Version 2)
Quarter: 2016Q3

REPORT INFORMATION
  Report Type: Spontaneous
  Country: AU (occurrence: AU)
  Receive Date: 20160804
  Receipt Date: 20160915
  Transmission Date: 20161109
  Serious: Yes (Death)
  Sender: FDA-Public Use
  Company Number: AU-LHC-2016118

PATIENT
  Age: 0 Day
  Sex: Male

DRUGS (2)
  1. NITROUS OXIDE. [Suspect]
     Active Substance: NITROUS OXIDE
     Indication: ACCIDENTAL EXPOSURE TO PRODUCT
     Dates: start: 20160713
  2. BOC GASES REFRIDGERATED LIQUID OXYGEN MEDICAL GRADE(S) GAS MEDICINAL [Suspect]
     Active Substance: OXYGEN
     Indication: RESUSCITATION

REACTIONS (3)
  - Treatment failure [Fatal]
  - Wrong drug administered [Fatal]
  - Brain injury [Fatal]

NARRATIVE: CASE EVENT DATE: 20160713
